FAERS Safety Report 16559786 (Version 1)
Quarter: 2019Q3

REPORT INFORMATION
  Report Type: Spontaneous
  Country: US (occurrence: US)
  Receive Date: 20190711
  Receipt Date: 20190711
  Transmission Date: 20191004
  Serious: No
  Sender: FDA-Public Use
  Company Number: US-PFIZER INC-2019293557

PATIENT
  Age: 89 Year
  Sex: Female
  Weight: 58.6 kg

DRUGS (1)
  1. XANAX [Suspect]
     Active Substance: ALPRAZOLAM
     Indication: SLEEP DISORDER
     Dosage: UNK, AS NEEDED (TAKEN NIGHTLY AS NEEDED, NOT EVERY NIGHT/HALF DOSE OF XANAX)
     Dates: start: 2017

REACTIONS (2)
  - Drug ineffective for unapproved indication [Unknown]
  - Off label use [Unknown]
